FAERS Safety Report 6290137-7 (Version None)
Quarter: 2009Q3

REPORT INFORMATION
  Report Type: 
  Country: None (occurrence: None)
  Receive Date: 20090730
  Receipt Date: 20081209
  Transmission Date: 20100115
  Serious: Yes (Other)
  Sender: FDA-Public Use
  Company Number: US-BRISTOL-MYERS SQUIBB COMPANY-14437545

PATIENT
  Age: 78 Year
  Sex: Female

DRUGS (2)
  1. COUMADIN [Suspect]
  2. LOVENOX [Suspect]
     Indication: PULMONARY EMBOLISM
     Dosage: FORMULATION - SOLUTION FOR INJECTION; 60MG DAILY SWITCHED TO BID IN SEP08
     Dates: start: 20080901

REACTIONS (2)
  - ARTERIAL HAEMORRHAGE [None]
  - HAEMATOMA [None]
